FAERS Safety Report 5340214-X (Version None)
Quarter: 2007Q2

REPORT INFORMATION
  Report Type: 
  Country: None (occurrence: None)
  Receive Date: 20070531
  Receipt Date: 20070524
  Transmission Date: 20071010
  Serious: Yes (Other)
  Sender: FDA-Public Use
  Company Number: HQWYE366825MAY07

PATIENT
  Age: 49 Year
  Sex: Female
  Weight: 72.64 kg

DRUGS (2)
  1. ADVIL [Suspect]
     Indication: MUSCULOSKELETAL PAIN
     Route: 048
     Dates: start: 20061211, end: 20061211
  2. PERCOCET [Suspect]
     Indication: MUSCULOSKELETAL PAIN
     Dosage: UNKNOWN DOSE THREE TIMES DAILY
     Route: 065
     Dates: start: 20061201, end: 20061201

REACTIONS (10)
  - BALANCE DISORDER [None]
  - CEREBROVASCULAR ACCIDENT [None]
  - DISTURBANCE IN ATTENTION [None]
  - DYSPNOEA [None]
  - FEELING ABNORMAL [None]
  - GASTRIC DISORDER [None]
  - HYPOAESTHESIA ORAL [None]
  - HYPOVENTILATION [None]
  - SENSORY DISTURBANCE [None]
  - VISUAL DISTURBANCE [None]
